FAERS Safety Report 8555382-6 (Version None)
Quarter: 2012Q3

REPORT INFORMATION
  Report Type: 
  Country: None (occurrence: None)
  Receive Date: 20120731
  Receipt Date: 20120118
  Transmission Date: 20120928
  Serious: No
  Sender: FDA-Public Use
  Company Number: US-ASTRAZENECA-2011SE28205

PATIENT
  Age: 55 Year
  Sex: Female
  Weight: 67.6 kg

DRUGS (21)
  1. SEROQUEL XR [Suspect]
     Indication: BIPOLAR I DISORDER
     Route: 048
  2. SEROQUEL XR [Suspect]
     Route: 048
  3. LORAZEPAM [Concomitant]
  4. CYMBALTA [Concomitant]
  5. SEROQUEL XR [Suspect]
     Indication: BIPOLAR II DISORDER
     Route: 048
  6. SEROQUEL XR [Suspect]
     Route: 048
  7. FISH OIL [Concomitant]
  8. SEROQUEL XR [Suspect]
     Route: 048
  9. SEROQUEL XR [Suspect]
     Route: 048
  10. SEROQUEL XR [Suspect]
     Route: 048
  11. SYNTHROID [Concomitant]
  12. SEROQUEL XR [Suspect]
     Route: 048
     Dates: start: 20100101
  13. SEROQUEL XR [Suspect]
     Route: 048
     Dates: start: 20100101
  14. SEROQUEL XR [Suspect]
     Route: 048
     Dates: start: 20100101
  15. SEROQUEL XR [Suspect]
     Indication: DEPRESSION
     Route: 048
  16. SEROQUEL XR [Suspect]
     Route: 048
  17. LOMOTREGINE [Concomitant]
  18. WELLBUTRIN [Concomitant]
  19. TEMAZEPAM [Concomitant]
  20. CLONEPINE [Concomitant]
  21. METFORMIN HYDROCHLORIDE [Concomitant]

REACTIONS (11)
  - TACHYCARDIA [None]
  - DIZZINESS [None]
  - WRONG DRUG ADMINISTERED [None]
  - HEART RATE INCREASED [None]
  - WEIGHT INCREASED [None]
  - PNEUMONIA [None]
  - RESPIRATORY DISORDER [None]
  - MALAISE [None]
  - BLOOD GLUCOSE INCREASED [None]
  - BLOOD CHOLESTEROL INCREASED [None]
  - HALLUCINATION, AUDITORY [None]
